FAERS Safety Report 12972543 (Version 1)
Quarter: 2016Q4

REPORT INFORMATION
  Report Type: Report from Study
  Country: US (occurrence: US)
  Receive Date: 20161124
  Receipt Date: 20161124
  Transmission Date: 20170207
  Serious: No
  Sender: FDA-Public Use
  Company Number: US-PROSTRAKAN-2016-US-0072

PATIENT

DRUGS (2)
  1. GRANISETRON [Suspect]
     Active Substance: GRANISETRON
     Indication: DRUG LEVEL
     Dosage: 1 PATCH FOR 7 DAYS
     Route: 062
     Dates: start: 20131024, end: 20131030
  2. SANCUSO [Suspect]
     Active Substance: GRANISETRON
     Indication: DRUG LEVEL
     Dosage: 1 MG IV OVER 5 MINUTES
     Route: 042

REACTIONS (9)
  - Wrong technique in product usage process [Unknown]
  - Headache [Recovered/Resolved]
  - Application site pruritus [Recovered/Resolved]
  - Diarrhoea [Recovered/Resolved]
  - Product quality issue [Unknown]
  - Anaemia [Unknown]
  - Postmature baby [None]
  - Anaemia of pregnancy [None]
  - Exposure during pregnancy [Unknown]

NARRATIVE: CASE EVENT DATE: 20131024
